FAERS Safety Report 20886599 (Version 1)
Quarter: 2022Q2

REPORT INFORMATION
  Report Type: Spontaneous
  Country: CA (occurrence: CA)
  Receive Date: 20220527
  Receipt Date: 20220527
  Transmission Date: 20220721
  Serious: Yes (Hospitalization)
  Sender: FDA-Public Use
  Company Number: CA-BAYER-2022A073926

PATIENT
  Age: 95 Year
  Sex: Female

DRUGS (1)
  1. XARELTO [Interacting]
     Active Substance: RIVAROXABAN
     Indication: Product used for unknown indication
     Dosage: UNK
     Route: 048

REACTIONS (4)
  - Upper gastrointestinal haemorrhage [Unknown]
  - Therapeutic product effect increased [Unknown]
  - Drug-disease interaction [Unknown]
  - Drug interaction [Unknown]
